FAERS Safety Report 10911818 (Version 1)
Quarter: 2015Q1

REPORT INFORMATION
  Report Type: Spontaneous
  Country: US (occurrence: None)
  Receive Date: 20150310
  Receipt Date: 20150310
  Transmission Date: 20150721
  Serious: Yes (Other)
  Sender: FDA-Public Use
  Company Number: None

PATIENT
  Age: 3 Year
  Sex: Male
  Weight: 16.78 kg

DRUGS (2)
  1. ANTIHISTAMINE FOR HIVES [Concomitant]
  2. CHILDRENS MOTRIN [Suspect]
     Active Substance: IBUPROFEN
     Indication: PYREXIA
     Dosage: 1 DOSE
     Route: 048
     Dates: start: 20140101, end: 20141220

REACTIONS (3)
  - Eye swelling [None]
  - Crying [None]
  - Lip swelling [None]

NARRATIVE: CASE EVENT DATE: 20141220
